FAERS Safety Report 21252191 (Version 3)
Quarter: 2024Q1

REPORT INFORMATION
  Report Type: Spontaneous
  Country: FR (occurrence: FR)
  Receive Date: 20220825
  Receipt Date: 20240105
  Transmission Date: 20240409
  Serious: Yes (Hospitalization, Disabling, Other)
  Sender: FDA-Public Use
  Company Number: FR-009507513-1404FRA004575

PATIENT
  Age: 25 Year
  Sex: Female
  Weight: 65 kg

DRUGS (1)
  1. IMPLANON [Suspect]
     Active Substance: ETONOGESTREL
     Indication: Contraception
     Dosage: 1 IMPLANT IN LEFT ARM
     Route: 058
     Dates: start: 20101105

REACTIONS (29)
  - General anaesthesia [Unknown]
  - Device dislocation [Not Recovered/Not Resolved]
  - Surgery [Unknown]
  - Pregnancy with implant contraceptive [Recovered/Resolved]
  - Dizziness [Unknown]
  - Adnexa uteri pain [Unknown]
  - Temperature intolerance [Unknown]
  - Balance disorder [Unknown]
  - Stress [Unknown]
  - Psoriasis [Unknown]
  - Palpitations [Unknown]
  - Haematoma [Unknown]
  - Eating disorder [Unknown]
  - Complication of device insertion [Recovered/Resolved]
  - Keloid scar [Not Recovered/Not Resolved]
  - Amenorrhoea [Recovered/Resolved]
  - Weight increased [Unknown]
  - Heavy menstrual bleeding [Unknown]
  - Ovarian cyst [Unknown]
  - Anxiety [Unknown]
  - Menstruation delayed [Unknown]
  - Device dislocation [Not Recovered/Not Resolved]
  - Complication associated with device [Recovered/Resolved]
  - Insomnia [Unknown]
  - Depression [Unknown]
  - Unintended pregnancy [Recovered/Resolved]
  - Complication of device removal [Not Recovered/Not Resolved]
  - Inappropriate schedule of product administration [Unknown]
  - Incorrect product administration duration [Unknown]

NARRATIVE: CASE EVENT DATE: 20101101
